FAERS Safety Report 21272444 (Version 1)
Quarter: 2022Q3

REPORT INFORMATION
  Report Type: Spontaneous
  Country: US (occurrence: US)
  Receive Date: 20220830
  Receipt Date: 20220830
  Transmission Date: 20221026
  Serious: No
  Sender: FDA-Public Use
  Company Number: US-ABBVIE-21K-163-4067693-00

PATIENT
  Age: 41 Year
  Sex: Female

DRUGS (8)
  1. MAVYRET [Suspect]
     Active Substance: GLECAPREVIR\PIBRENTASVIR
     Indication: Hepatitis C
     Route: 048
     Dates: start: 20210829
  2. SOLFINEX [Concomitant]
     Indication: Asthma
  3. EXCEDRIN [Concomitant]
     Active Substance: ACETAMINOPHEN\ASPIRIN\CAFFEINE
     Indication: Headache
  4. MELOXICAM [Concomitant]
     Active Substance: MELOXICAM
     Indication: Arthritis
  5. ZYRTEC [Concomitant]
     Active Substance: CETIRIZINE HYDROCHLORIDE
     Indication: Allergy prophylaxis
  6. TRICYLAMINE [Concomitant]
     Indication: Irritable bowel syndrome
  7. PEPCID [Concomitant]
     Active Substance: FAMOTIDINE
     Indication: Gastrooesophageal reflux disease
  8. SERTERA [Concomitant]
     Indication: Attention deficit hyperactivity disorder

REACTIONS (2)
  - Crystal urine present [Not Recovered/Not Resolved]
  - Creatinine urine abnormal [Not Recovered/Not Resolved]

NARRATIVE: CASE EVENT DATE: 20210101
